FAERS Safety Report 5056826-7 (Version None)
Quarter: 2006Q2

REPORT INFORMATION
  Report Type: 
  Country: None (occurrence: None)
  Receive Date: 20060619
  Receipt Date: 20050421
  Transmission Date: 20061013
  Serious: Yes (Disabling)
  Sender: FDA-Public Use
  Company Number: WAES 0504USA04002

PATIENT
  Age: 62 Year
  Sex: Female

DRUGS (6)
  1. COZAAR [Suspect]
     Indication: VENTRICULAR HYPERTROPHY
     Dosage: SEE IMAGE
     Route: 048
     Dates: start: 20050201, end: 20050301
  2. COZAAR [Suspect]
     Indication: VENTRICULAR HYPERTROPHY
     Dosage: SEE IMAGE
     Route: 048
     Dates: start: 20050301, end: 20050401
  3. COZAAR [Suspect]
     Indication: VENTRICULAR HYPERTROPHY
     Dosage: SEE IMAGE
     Route: 048
     Dates: start: 20050401
  4. CORTEF [Concomitant]
  5. QVAR 40 [Concomitant]
  6. SINGULAIR [Concomitant]

REACTIONS (3)
  - FATIGUE [None]
  - MYALGIA [None]
  - VISION BLURRED [None]
